FAERS Safety Report 10921622 (Version 1)
Quarter: 2015Q1

REPORT INFORMATION
  Report Type: Spontaneous
  Country: ES (occurrence: None)
  Receive Date: 20150312
  Receipt Date: 20150312
  Transmission Date: 20150721
  Serious: Yes (Other)
  Sender: FDA-Public Use
  Company Number: 2277450

PATIENT
  Age: 70 Year
  Sex: Female

DRUGS (6)
  1. FLUOROURACIL. [Suspect]
     Active Substance: FLUOROURACIL
     Indication: RECTAL ADENOCARCINOMA
     Dates: start: 20090511, end: 20090617
  2. OXALIPLATIN. [Suspect]
     Active Substance: OXALIPLATIN
     Indication: RECTAL ADENOCARCINOMA
     Dates: start: 20090929
  3. LEUCOVORIN [Suspect]
     Active Substance: LEUCOVORIN
     Indication: RECTAL ADENOCARCINOMA
     Dates: start: 20090511, end: 20090617
  4. BEVACIZUMAB [Suspect]
     Active Substance: BEVACIZUMAB
     Indication: RECTAL ADENOCARCINOMA
     Dates: start: 20090929
  5. RALTITREXED DISODIUM [Suspect]
     Active Substance: RALTITREXED
     Indication: RECTAL ADENOCARCINOMA
     Dates: start: 20130514
  6. IRINOTECAN HYDROCHLORIDE. [Suspect]
     Active Substance: IRINOTECAN HYDROCHLORIDE
     Indication: RECTAL ADENOCARCINOMA
     Dates: start: 20111121

REACTIONS (9)
  - Metastases to lung [None]
  - Dyspnoea exertional [None]
  - Stomatitis [None]
  - Disease progression [None]
  - Female genital tract fistula [None]
  - Diarrhoea [None]
  - Jugular vein thrombosis [None]
  - Pneumothorax [None]
  - Abdominal discomfort [None]

NARRATIVE: CASE EVENT DATE: 200910
